FAERS Safety Report 5033622-8 (Version None)
Quarter: 2006Q2

REPORT INFORMATION
  Report Type: 
  Country: None (occurrence: None)
  Receive Date: 20060620
  Receipt Date: 20060606
  Transmission Date: 20061013
  Serious: Yes (Hospitalization)
  Sender: FDA-Public Use
  Company Number: BE200606001718

PATIENT
  Age: 42 Year
  Sex: Male

DRUGS (2)
  1. ALIMTA [Suspect]
     Indication: MESOTHELIOMA MALIGNANT
     Dates: end: 20040801
  2. CISPLATIN [Concomitant]

REACTIONS (2)
  - HEPATIC ENZYME ABNORMAL [None]
  - RIGHT VENTRICULAR FAILURE [None]
